FAERS Safety Report 9109704 (Version 1)
Quarter: 2013Q1

REPORT INFORMATION
  Report Type: Spontaneous
  Country: US (occurrence: US)
  Receive Date: 20130222
  Receipt Date: 20130222
  Transmission Date: 20140127
  Serious: No
  Sender: FDA-Public Use
  Company Number: US-BAYER-2013-021709

PATIENT
  Sex: Female

DRUGS (5)
  1. BETASERON [Suspect]
     Indication: MULTIPLE SCLEROSIS
     Dosage: 0.25 MG, QOD
     Route: 058
  2. CYCLOSPORIN [Concomitant]
     Dosage: 100 MG, UNK
  3. HUMULIN U [Concomitant]
     Dosage: U-100
  4. PRAVASTATIN [Concomitant]
     Dosage: 10 MG, UNK
  5. VITAMIN D [Concomitant]
     Dosage: 1000 IU, UNK

REACTIONS (1)
  - Injection site pruritus [Unknown]
